FAERS Safety Report 8764671 (Version 1)
Quarter: 2012Q4

REPORT INFORMATION
  Report Type: 
  Country: FR (occurrence: FR)
  Receive Date: 20120831
  Receipt Date: 20120831
  Transmission Date: 20130627
  Serious: Yes (Life-Threatening, Hospitalization, Other)
  Sender: FDA-Public Use
  Company Number: FR-ROXANE LABORATORIES, INC.-2012-RO-01769RO

PATIENT
  Weight: 2 kg

DRUGS (2)
  1. DIGOXIN [Suspect]
     Indication: ATRIAL SEPTAL DEFECT
     Route: 048
  2. FUROSEMIDE [Suspect]
     Indication: ATRIAL SEPTAL DEFECT

REACTIONS (3)
  - Accidental overdose [Unknown]
  - Toxicity to various agents [Recovered/Resolved]
  - Blood potassium increased [Unknown]
